FAERS Safety Report 10415405 (Version 1)
Quarter: 2014Q3

REPORT INFORMATION
  Report Type: Spontaneous
  Country: US (occurrence: US)
  Receive Date: 20140828
  Receipt Date: 20140828
  Transmission Date: 20150326
  Serious: Yes (Other)
  Sender: FDA-Public Use
  Company Number: PHHY2014US107599

PATIENT
  Age: 23 Year
  Sex: Female

DRUGS (2)
  1. SMALLPOX VACCINE [Suspect]
     Active Substance: VACCINIA VIRUS STRAIN NEW YORK CITY BOARD OF HEALTH LIVE ANTIGEN
  2. CLOBETASOL [Suspect]
     Active Substance: CLOBETASOL
     Indication: DERMATITIS ATOPIC

REACTIONS (13)
  - Skin lesion [Recovered/Resolved]
  - Back pain [Unknown]
  - Dysuria [Unknown]
  - Orthopox virus infection [Unknown]
  - Pruritus [Unknown]
  - Vulval disorder [Recovered/Resolved]
  - Perineal erythema [Unknown]
  - Vulvovaginal pain [Unknown]
  - Pyrexia [Unknown]
  - Pain [Unknown]
  - Exposure via partner [Unknown]
  - Pelvic pain [Unknown]
  - Nodule [Unknown]
